FAERS Safety Report 7116215-8 (Version None)
Quarter: 2010Q4

REPORT INFORMATION
  Report Type: 
  Country: None (occurrence: None)
  Receive Date: 20101122
  Receipt Date: 20101112
  Transmission Date: 20110411
  Serious: Yes (Hospitalization, Other)
  Sender: FDA-Public Use
  Company Number: GB-B.I. PHARMACEUTICALS,INC./RIDGEFIELD-2010-UK-01089UK

PATIENT
  Age: 82 Year
  Sex: Female

DRUGS (3)
  1. PRADAXA [Suspect]
     Indication: HIP ARTHROPLASTY
     Dosage: 75 MG
     Route: 048
     Dates: start: 20101026
  2. PRADAXA [Suspect]
     Dosage: 150 MG
     Route: 048
  3. BETNESOL-N [Concomitant]

REACTIONS (4)
  - DISCOMFORT [None]
  - INFLAMMATION [None]
  - INTESTINAL DILATATION [None]
  - PAIN [None]
